FAERS Safety Report 7822022-0 (Version None)
Quarter: 2011Q4

REPORT INFORMATION
  Report Type: 
  Country: None (occurrence: None)
  Receive Date: 20111018
  Receipt Date: 20111006
  Transmission Date: 20120403
  Serious: Yes (Other)
  Sender: FDA-Public Use
  Company Number: PHHY2011MX88826

PATIENT
  Sex: Female

DRUGS (4)
  1. MINIPRESS [Concomitant]
     Dosage: 3 DF, UNK
  2. EXFORGE [Suspect]
     Indication: HYPERTENSION
     Dosage: 160 MG VALS AND 10 MG AMLO,1 DF, UNK
     Dates: start: 20090901
  3. LASIX [Concomitant]
     Dosage: 1 DF, UNK
  4. LOPRESSOR [Concomitant]
     Dosage: 120 MG, HALF TABLET

REACTIONS (2)
  - WRIST FRACTURE [None]
  - FALL [None]
